FAERS Safety Report 5885414-5 (Version None)
Quarter: 2008Q3

REPORT INFORMATION
  Report Type: 
  Country: None (occurrence: None)
  Receive Date: 20080915
  Receipt Date: 20080915
  Transmission Date: 20090109
  Serious: No
  Sender: FDA-Public Use
  Company Number: None

PATIENT
  Sex: Female
  Weight: 106.5953 kg

DRUGS (5)
  1. CELEXA [Suspect]
     Indication: MAJOR DEPRESSION
     Dosage: ONCE DAILY PO
     Route: 048
     Dates: start: 20030301, end: 20051201
  2. COGENTIN [Suspect]
     Indication: AKATHISIA
     Dosage: 2 MG. 5X DAILY PO
     Route: 048
     Dates: start: 20050401, end: 20070801
  3. LAMICTAL [Concomitant]
  4. REMERON [Concomitant]
  5. BENEDRYL [Concomitant]

REACTIONS (8)
  - ANOREXIA [None]
  - DIAPHRAGMATIC DISORDER [None]
  - IMPAIRED DRIVING ABILITY [None]
  - IMPAIRED WORK ABILITY [None]
  - RESTLESSNESS [None]
  - SPEECH DISORDER [None]
  - TARDIVE DYSKINESIA [None]
  - WEIGHT DECREASED [None]
